FAERS Safety Report 9627382 (Version 2)
Quarter: 2014Q2

REPORT INFORMATION
  Report Type: Spontaneous
  Country: US (occurrence: US)
  Receive Date: 20131016
  Receipt Date: 20140425
  Transmission Date: 20141212
  Serious: Yes (Other)
  Sender: FDA-Public Use
  Company Number: US-LUNDBECK-DKLU1086753

PATIENT
  Sex: Male

DRUGS (7)
  1. SABRIL (FOR ORAL SOLUTION) [Suspect]
     Indication: INFANTILE SPASMS
     Route: 048
     Dates: start: 20110603
  2. SABRIL (FOR ORAL SOLUTION) [Suspect]
     Route: 048
  3. SABRIL (FOR ORAL SOLUTION) [Suspect]
     Route: 048
  4. SABRIL (FOR ORAL SOLUTION) [Suspect]
     Route: 048
  5. SABRIL (FOR ORAL SOLUTION) [Suspect]
     Route: 048
     Dates: start: 20110603
  6. SABRIL (FOR ORAL SOLUTION) [Suspect]
     Route: 048
     Dates: start: 20110603
  7. SABRIL (FOR ORAL SOLUTION) [Suspect]
     Route: 048
     Dates: start: 20110603

REACTIONS (1)
  - Convulsion [Unknown]
